FAERS Safety Report 8408545-4 (Version None)
Quarter: 2012Q2

REPORT INFORMATION
  Report Type: 
  Country: None (occurrence: None)
  Receive Date: 20120604
  Receipt Date: 20120529
  Transmission Date: 20120825
  Serious: No
  Sender: FDA-Public Use
  Company Number: US-PFIZER INC-2012090169

PATIENT
  Sex: Male

DRUGS (16)
  1. ALLOPURINOL [Concomitant]
     Dosage: UNK
  2. METFORMIN [Concomitant]
     Dosage: UNK
  3. COLCHICINE [Concomitant]
     Dosage: UNK
  4. IMITREX [Concomitant]
     Dosage: UNK
  5. TRENTAL [Concomitant]
     Dosage: UNK
  6. OPANA [Suspect]
     Indication: BACK PAIN
     Dosage: 20 MG, 3X/DAY
     Route: 048
     Dates: end: 20120401
  7. CELEX [Concomitant]
     Dosage: UNK
  8. NEURONTIN [Concomitant]
     Dosage: UNK
  9. AMBIEN [Concomitant]
     Dosage: UNK
  10. SIMVASTATIN [Concomitant]
     Dosage: UNK
  11. BENEFIX [Suspect]
     Indication: FACTOR IX DEFICIENCY
     Dosage: 3000 IU, 3 TIMES A WEEK
     Route: 042
  12. OPANA [Suspect]
     Indication: ARTHRALGIA
  13. LASIX [Concomitant]
     Dosage: UNK
  14. INSULIN [Concomitant]
     Dosage: UNK
  15. NAPROSYN [Concomitant]
     Dosage: UNK
  16. BACTRIM [Concomitant]
     Dosage: UNK

REACTIONS (2)
  - ARTHRALGIA [None]
  - BACK PAIN [None]
